FAERS Safety Report 14511661 (Version 2)
Quarter: 2018Q3

REPORT INFORMATION
  Report Type: Report from Study
  Country: AT (occurrence: AT)
  Receive Date: 20180209
  Receipt Date: 20180730
  Transmission Date: 20181010
  Serious: Yes (Hospitalization)
  Sender: FDA-Public Use
  Company Number: AT-AMGEN-AUTCT2017188449

PATIENT
  Sex: Female

DRUGS (3)
  1. ETELCALCETIDE [Suspect]
     Active Substance: ETELCALCETIDE
     Dosage: 2.5 MG, 3 TIMES/WK
     Route: 042
  2. ETELCALCETIDE [Suspect]
     Active Substance: ETELCALCETIDE
     Dosage: 2.5 MG, 3 TIMES/WK
     Route: 042
  3. ETELCALCETIDE [Suspect]
     Active Substance: ETELCALCETIDE
     Indication: PRODUCT USED FOR UNKNOWN INDICATION
     Dosage: 5 MG, 3 TIMES/WK
     Route: 042
     Dates: start: 20171206

REACTIONS (3)
  - Haemoglobin decreased [Not Recovered/Not Resolved]
  - Renal surgery [Recovered/Resolved]
  - Gastrointestinal haemorrhage [Recovered/Resolved]

NARRATIVE: CASE EVENT DATE: 20171218
